FAERS Safety Report 10163948 (Version 1)
Quarter: 2014Q2

REPORT INFORMATION
  Report Type: Spontaneous
  Country: US (occurrence: US)
  Receive Date: 20140510
  Receipt Date: 20140510
  Transmission Date: 20141212
  Serious: No
  Sender: FDA-Public Use
  Company Number: US-BRISTOL-MYERS SQUIBB COMPANY-19687136

PATIENT
  Age: 59 Year
  Sex: Female
  Weight: 90.7 kg

DRUGS (3)
  1. BYETTA [Suspect]
     Indication: TYPE 2 DIABETES MELLITUS
     Dosage: THERAPY STARTED WITH 5MCG AND TITRATED TO 10MCG
     Dates: end: 2013
  2. WOBENZYM [Concomitant]
  3. VITAMIN D3 [Concomitant]

REACTIONS (4)
  - Blood glucose increased [Unknown]
  - Drug administration error [Unknown]
  - Underdose [Unknown]
  - Weight decreased [Unknown]
